FAERS Safety Report 6177670-3 (Version None)
Quarter: 2009Q2

REPORT INFORMATION
  Report Type: 
  Country: None (occurrence: None)
  Receive Date: 20090504
  Receipt Date: 20090429
  Transmission Date: 20091009
  Serious: Yes (Life-Threatening, Hospitalization, Other)
  Sender: FDA-Public Use
  Company Number: PHHO2005US08551

PATIENT
  Sex: Male
  Weight: 106 kg

DRUGS (16)
  1. STARLIX DJN+TAB [Suspect]
     Indication: GLUCOSE TOLERANCE IMPAIRED
     Dosage: 60 MG, UNK
     Route: 048
     Dates: start: 20030204
  2. STARLIX DJN+TAB [Suspect]
     Dosage: LEVEL 2
     Route: 048
     Dates: end: 20050418
  3. STARLIX DJN+TAB [Suspect]
     Dosage: LEVEL 2
     Route: 048
     Dates: start: 20050523, end: 20050602
  4. STARLIX DJN+TAB [Suspect]
     Dosage: NO TREATMENT
  5. STARLIX DJN+TAB [Suspect]
     Dosage: LEVEL 2
     Dates: end: 20080627
  6. VALSARTAN [Suspect]
     Indication: CARDIOVASCULAR DISORDER
     Dosage: LEVEL 1
     Route: 048
     Dates: start: 20030204
  7. VALSARTAN [Suspect]
     Dosage: LEVEL 2
     Route: 048
     Dates: end: 20050418
  8. VALSARTAN [Suspect]
     Dosage: LEVEL 2
     Route: 048
     Dates: start: 20050523, end: 20050602
  9. VALSARTAN [Suspect]
     Dosage: NO TREATMENT
     Route: 048
  10. VALSARTAN [Suspect]
     Dosage: LEVEL 2
     Dates: end: 20080627
  11. METFORMIN HCL [Concomitant]
     Indication: DIABETES MELLITUS
  12. PROPRANOLOL [Concomitant]
     Indication: HYPERTENSION
  13. LEVOTHYROXINE SODIUM [Concomitant]
     Indication: HYPOTHYROIDISM
  14. ASPIRIN [Concomitant]
     Indication: CARDIOVASCULAR EVENT PROPHYLAXIS
  15. SIMVASTATIN [Concomitant]
     Indication: HYPERTENSION
  16. LISINOPRIL AND HYDROCHLOROTHIAZIDE [Concomitant]
     Indication: HYPERTENSION

REACTIONS (15)
  - ABSCESS DRAINAGE [None]
  - ANASTOMOTIC LEAK [None]
  - CHILLS [None]
  - COLECTOMY [None]
  - COLON CANCER STAGE II [None]
  - DISEASE PROGRESSION [None]
  - GASTRIC PH DECREASED [None]
  - HAEMATOMA EVACUATION [None]
  - HAEMATOMA INFECTION [None]
  - HAEMOGLOBIN DECREASED [None]
  - POST PROCEDURAL HAEMATOMA [None]
  - PYREXIA [None]
  - RASH [None]
  - RECTAL HAEMORRHAGE [None]
  - WOUND ABSCESS [None]
